FAERS Safety Report 14710874 (Version 1)
Quarter: 2018Q2

REPORT INFORMATION
  Report Type: Spontaneous
  Country: US (occurrence: US)
  Receive Date: 20180403
  Receipt Date: 20180403
  Transmission Date: 20180711
  Serious: Yes (Death, Other)
  Sender: FDA-Public Use
  Company Number: US-TARO PHARMACEUTICALS USA.,INC-2018SUN00191

PATIENT
  Age: 16 Year
  Sex: Male

DRUGS (4)
  1. BUPROPION. [Suspect]
     Active Substance: BUPROPION
     Indication: PRODUCT USED FOR UNKNOWN INDICATION
     Dosage: UNK
     Route: 065
  2. LAMOTRIGINE. [Suspect]
     Active Substance: LAMOTRIGINE
     Indication: PRODUCT USED FOR UNKNOWN INDICATION
     Dosage: UNK
     Route: 065
  3. GUANFACINE. [Suspect]
     Active Substance: GUANFACINE
     Indication: PRODUCT USED FOR UNKNOWN INDICATION
     Dosage: UNK
     Route: 065
  4. HYDROXYZINE [Suspect]
     Active Substance: HYDROXYZINE HYDROCHLORIDE
     Indication: PRODUCT USED FOR UNKNOWN INDICATION
     Dosage: UNK
     Route: 065

REACTIONS (14)
  - Hypotension [Unknown]
  - Tachycardia [Unknown]
  - Neuromyopathy [Unknown]
  - Gastrointestinal haemorrhage [Unknown]
  - Respiratory depression [Unknown]
  - Toxicity to various agents [Fatal]
  - Hallucination [Unknown]
  - Unevaluable event [Unknown]
  - Electrocardiogram QRS complex prolonged [Unknown]
  - Depressed level of consciousness [Unknown]
  - Paraesthesia [Unknown]
  - Anion gap [Unknown]
  - Agitation [Unknown]
  - Delirium [Unknown]
